FAERS Safety Report 5284828-4 (Version None)
Quarter: 2007Q2

REPORT INFORMATION
  Report Type: 
  Country: None (occurrence: None)
  Receive Date: 20070403
  Receipt Date: 20070322
  Transmission Date: 20071010
  Serious: Yes (Hospitalization)
  Sender: FDA-Public Use
  Company Number: DE-BRISTOL-MYERS SQUIBB COMPANY-13725650

PATIENT
  Age: 44 Year
  Sex: Male

DRUGS (2)
  1. ABILIFY [Suspect]
     Indication: PSYCHOTIC DISORDER
     Route: 048
  2. ESCITALOPRAM [Interacting]
     Indication: DEPRESSION
     Route: 048

REACTIONS (3)
  - DRUG INTERACTION [None]
  - SEROTONIN SYNDROME [None]
  - SOMNOLENCE [None]
